FAERS Safety Report 6722889-3 (Version None)
Quarter: 2010Q2

REPORT INFORMATION
  Report Type: 
  Country: None (occurrence: None)
  Receive Date: 20100512
  Receipt Date: 20100512
  Transmission Date: 20101027
  Serious: Yes (Death)
  Sender: FDA-Public Use
  Company Number: None

PATIENT
  Age: 86 Year
  Sex: Male

DRUGS (10)
  1. REVLIMID [Suspect]
     Indication: MULTIPLE MYELOMA
     Dosage: 15MG DAILY 21D/28D ORALLY
     Route: 048
  2. DECADRON [Concomitant]
  3. LISINOPRIL [Concomitant]
  4. AMLODIPINE [Concomitant]
  5. VICODIN [Concomitant]
  6. GLIPIZIDE [Concomitant]
  7. FAMOTIDINE [Concomitant]
  8. ASPIRIN [Concomitant]
  9. SIMVASTATIN [Concomitant]
  10. METOPROLOL TARTRATE [Concomitant]

REACTIONS (7)
  - ACUTE MYOCARDIAL INFARCTION [None]
  - CORONARY ARTERY DISEASE [None]
  - DYSPHAGIA [None]
  - FALL [None]
  - HYPERTENSION [None]
  - MOBILITY DECREASED [None]
  - PAIN [None]
